FAERS Safety Report 19571080 (Version 1)
Quarter: 2021Q3

REPORT INFORMATION
  Report Type: Spontaneous
  Country: US (occurrence: US)
  Receive Date: 20210715
  Receipt Date: 20210715
  Transmission Date: 20211014
  Serious: Yes (Other)
  Sender: FDA-Public Use
  Company Number: US-GLAXOSMITHKLINE-US2021GSK149962

PATIENT
  Sex: Female

DRUGS (4)
  1. ZANTAC [Suspect]
     Active Substance: RANITIDINE HYDROCHLORIDE
     Indication: NEOPLASM MALIGNANT
     Dosage: UNKNOWN AT THIS TIME BOTH
     Route: 065
     Dates: start: 201801, end: 201901
  2. ZANTAC [Suspect]
     Active Substance: RANITIDINE HYDROCHLORIDE
     Indication: NEOPLASM MALIGNANT
     Dosage: UNKNOWN AT THIS TIME BOTH
     Route: 065
     Dates: start: 201801, end: 201901
  3. ZANTAC [Suspect]
     Active Substance: RANITIDINE HYDROCHLORIDE
     Indication: NEOPLASM MALIGNANT
     Dosage: UNKNOWN AT THIS TIME BOTH
     Route: 065
     Dates: start: 201801, end: 201901
  4. RANITIDINE CAPSULE [Suspect]
     Active Substance: RANITIDINE
     Indication: NEOPLASM MALIGNANT
     Dosage: UNKNOWN AT THIS TIME BOTH
     Route: 065
     Dates: start: 201801, end: 201901

REACTIONS (1)
  - Breast cancer [Unknown]
